FAERS Safety Report 9342863 (Version 3)
Quarter: 2013Q4

REPORT INFORMATION
  Report Type: Spontaneous
  Country: US (occurrence: US)
  Receive Date: 20130611
  Receipt Date: 20131217
  Transmission Date: 20140711
  Serious: Yes (Hospitalization)
  Sender: FDA-Public Use
  Company Number: US-GLAXOSMITHKLINE-A1026461A

PATIENT
  Age: 45 Year
  Sex: Male

DRUGS (2)
  1. FLOLAN [Suspect]
     Indication: COR PULMONALE CHRONIC
     Dosage: 40.9NGKM CONTINUOUS
     Route: 042
     Dates: start: 20070328
  2. COUMADIN [Concomitant]

REACTIONS (5)
  - Fluid retention [Unknown]
  - Hypotension [Unknown]
  - Dizziness [Unknown]
  - Weight decreased [Unknown]
  - Lung transplant [Unknown]
